FAERS Safety Report 25178110 (Version 2)
Quarter: 2025Q2

REPORT INFORMATION
  Report Type: Spontaneous
  Country: US (occurrence: US)
  Receive Date: 20250409
  Receipt Date: 20250418
  Transmission Date: 20250717
  Serious: Yes (Death, Life-Threatening, Hospitalization, Other)
  Sender: PROCTER AND GAMBLE
  Company Number: US-PROCTER+GAMBLE-PH25002508

PATIENT
  Age: 14 Year
  Sex: Female

DRUGS (2)
  1. ACETAMINOPHEN [Suspect]
     Active Substance: ACETAMINOPHEN
     Route: 048
  2. IRON [Suspect]
     Active Substance: IRON
     Route: 048

REACTIONS (10)
  - Acute hepatic failure [Fatal]
  - Hyperammonaemic encephalopathy [Fatal]
  - Vasoplegia syndrome [Fatal]
  - Analgesic drug level increased [Fatal]
  - Coagulopathy [Fatal]
  - Haemodynamic instability [Fatal]
  - Neurological examination abnormal [Fatal]
  - Toxicity to various agents [Fatal]
  - Hepatotoxicity [Fatal]
  - Intentional overdose [Fatal]
